FAERS Safety Report 17275434 (Version 2)
Quarter: 2020Q2

REPORT INFORMATION
  Report Type: Report from Study
  Country: US (occurrence: US)
  Receive Date: 20200116
  Receipt Date: 20200415
  Transmission Date: 20200713
  Serious: Yes (Hospitalization)
  Sender: FDA-Public Use
  Company Number: US-ASTRAZENECA-2020SE05764

PATIENT
  Age: 502 Day
  Sex: Male

DRUGS (14)
  1. LEVOTHYROXIN [Concomitant]
     Active Substance: LEVOTHYROXINE
  2. PROPRANOLOL [Concomitant]
     Active Substance: PROPRANOLOL HYDROCHLORIDE
  3. ALBUTEROL. [Concomitant]
     Active Substance: ALBUTEROL
  4. FAMOTIDINE. [Concomitant]
     Active Substance: FAMOTIDINE
  5. FUROSEMIDE. [Concomitant]
     Active Substance: FUROSEMIDE
  6. A-HYDROCORT [Concomitant]
     Active Substance: HYDROCORTISONE SODIUM SUCCINATE
  7. METOLAZONE. [Concomitant]
     Active Substance: METOLAZONE
  8. IBUPROFEN. [Concomitant]
     Active Substance: IBUPROFEN
  9. SOD CHLOR NEB 7% [Concomitant]
  10. POLY-VI-SOL [Concomitant]
     Active Substance: VITAMINS
  11. SYNAGIS [Suspect]
     Active Substance: PALIVIZUMAB
     Indication: HYPOXIA
     Route: 030
     Dates: start: 20181228
  12. EUCERIN [Concomitant]
     Active Substance: ENSULIZOLE\EUCERIN\OCTINOXATE\OCTISALATE\TITANIUM DIOXIDE\ZINC OXIDE
  13. ASPIRIN. [Concomitant]
     Active Substance: ASPIRIN
  14. FLOVENT HFA [Concomitant]
     Active Substance: FLUTICASONE PROPIONATE

REACTIONS (1)
  - Respiratory syncytial virus infection [Recovered/Resolved]

NARRATIVE: CASE EVENT DATE: 20191215
